FAERS Safety Report 8654522 (Version 7)
Quarter: 2012Q4

REPORT INFORMATION
  Report Type: 
  Country: US (occurrence: US)
  Receive Date: 20120709
  Receipt Date: 20121210
  Transmission Date: 20130627
  Serious: Yes (Hospitalization, Other)
  Sender: FDA-Public Use
  Company Number: US-ACTELION-A-US2012-64710

PATIENT
  Age: 60 Year
  Sex: Female

DRUGS (5)
  1. TRACLEER [Suspect]
     Indication: PULMONARY ARTERIAL HYPERTENSION
     Dosage: UNK
     Route: 048
  2. VENTAVIS [Suspect]
     Indication: PULMONARY ARTERIAL HYPERTENSION
     Dosage: UNK
     Route: 055
  3. SILDENAFIL [Concomitant]
  4. ASPIRIN [Concomitant]
  5. COUMADIN [Concomitant]

REACTIONS (8)
  - Leg amputation [Not Recovered/Not Resolved]
  - Pain in extremity [Not Recovered/Not Resolved]
  - Peripheral vascular disorder [Recovering/Resolving]
  - Peripheral ischaemia [Recovering/Resolving]
  - Gangrene [Recovering/Resolving]
  - Vascular graft [Recovering/Resolving]
  - Hypoaesthesia [Recovering/Resolving]
  - Oedema peripheral [Recovering/Resolving]
